FAERS Safety Report 9723136 (Version 1)
Quarter: 2013Q4

REPORT INFORMATION
  Report Type: Report from Study
  Country: US (occurrence: US)
  Receive Date: 20131202
  Receipt Date: 20131202
  Transmission Date: 20140711
  Serious: Yes (Hospitalization)
  Sender: FDA-Public Use
  Company Number: US-ABBVIE-13P-163-1173684-00

PATIENT
  Age: 77 Year
  Sex: Female
  Weight: 60.38 kg

DRUGS (5)
  1. HUMIRA [Suspect]
     Indication: RHEUMATOID ARTHRITIS
     Route: 058
     Dates: start: 2000
  2. CELEBREX [Concomitant]
     Indication: RHEUMATOID ARTHRITIS
  3. PROZAC [Concomitant]
     Indication: DEPRESSION
  4. TYLENOL [Concomitant]
     Indication: RHEUMATOID ARTHRITIS
  5. METHOTREXATE [Concomitant]
     Indication: RHEUMATOID ARTHRITIS

REACTIONS (7)
  - Dysstasia [Recovered/Resolved]
  - Ataxia [Recovered/Resolved]
  - Aphasia [Recovered/Resolved]
  - Mental impairment [Recovered/Resolved]
  - Hypoaesthesia [Recovered/Resolved]
  - Meningitis viral [Recovered/Resolved]
  - Cerebrovascular accident [Recovered/Resolved]
